FAERS Safety Report 7970207-5 (Version None)
Quarter: 2011Q4

REPORT INFORMATION
  Report Type: 
  Country: None (occurrence: None)
  Receive Date: 20111212
  Receipt Date: 20111206
  Transmission Date: 20120403
  Serious: Yes (Hospitalization)
  Sender: FDA-Public Use
  Company Number: US-SANOFI-AVENTIS-2011SA079963

PATIENT
  Sex: Female

DRUGS (1)
  1. PLAVIX [Suspect]

REACTIONS (2)
  - DYSPHAGIA [None]
  - HOSPITALISATION [None]
